FAERS Safety Report 11139650 (Version 1)
Quarter: 2015Q2

REPORT INFORMATION
  Report Type: Report from Study
  Country: US (occurrence: US)
  Receive Date: 20150527
  Receipt Date: 20150527
  Transmission Date: 20150821
  Serious: Yes (Hospitalization)
  Sender: FDA-Public Use
  Company Number: US-ALLERGAN-1509235CX

PATIENT
  Age: 48 Year
  Sex: Female

DRUGS (5)
  1. SKINMEDICA FACIAL CLEANSER [Concomitant]
     Active Substance: COSMETICS
     Indication: PROPHYLAXIS
     Route: 061
  2. TRAZEDONE [Concomitant]
     Indication: PRODUCT USED FOR UNKNOWN INDICATION
  3. SKINMEDICA ULTRA SHEER MOISTURIZER [Concomitant]
     Active Substance: COSMETICS
     Indication: PROPHYLAXIS
     Route: 061
  4. ZOLOFT [Concomitant]
     Active Substance: SERTRALINE HYDROCHLORIDE
     Indication: PRODUCT USED FOR UNKNOWN INDICATION
     Route: 048
  5. SKINMEDICA TOTAL DEFENSE + REPAIR SPF 34, UNTINTED [Suspect]
     Active Substance: OCTINOXATE\ZINC OXIDE
     Indication: PROPHYLAXIS
     Dosage: APPLIED TWICE DAILY
     Route: 061
     Dates: start: 20150309, end: 20150504

REACTIONS (1)
  - Wrist surgery [Unknown]

NARRATIVE: CASE EVENT DATE: 20150428
